FAERS Safety Report 8701478 (Version 2)
Quarter: 2013Q4

REPORT INFORMATION
  Report Type: Spontaneous
  Country: US (occurrence: US)
  Receive Date: 20120802
  Receipt Date: 20131031
  Transmission Date: 20140711
  Serious: Yes (Hospitalization)
  Sender: FDA-Public Use
  Company Number: US-009507513-1207USA011311

PATIENT
  Age: 50 Year
  Sex: Male

DRUGS (4)
  1. ZOCOR [Suspect]
     Dosage: 1 DF, UNK
     Route: 048
  2. BENOCTEN [Suspect]
     Dosage: 2500 MG, ONCE
  3. LITHIUM ACETATE [Suspect]
     Dosage: 1 DF, UNK
     Route: 048
  4. REMERON [Suspect]
     Dosage: 90 MG, ONCE

REACTIONS (7)
  - Tachycardia [Unknown]
  - Suicide attempt [Unknown]
  - Somnolence [Unknown]
  - Blood creatine phosphokinase increased [Unknown]
  - Intentional overdose [Unknown]
  - Electrocardiogram QT prolonged [Unknown]
  - Electrocardiogram QRS complex prolonged [Unknown]
